FAERS Safety Report 5287677-6 (Version None)
Quarter: 2007Q2

REPORT INFORMATION
  Report Type: 
  Country: None (occurrence: None)
  Receive Date: 20070405
  Receipt Date: 20070328
  Transmission Date: 20071010
  Serious: Yes (Other)
  Sender: FDA-Public Use
  Company Number: US-BAYER-200710666BCC

PATIENT
  Age: 54 Year
  Sex: Female

DRUGS (1)
  1. ALKA SELTZER [Suspect]
     Indication: LAXATIVE SUPPORTIVE CARE
     Route: 048

REACTIONS (2)
  - CHOLECYSTECTOMY [None]
  - GALLBLADDER DISORDER [None]
